FAERS Safety Report 11445078 (Version 1)
Quarter: 2015Q3

REPORT INFORMATION
  Report Type: Spontaneous
  Country: US (occurrence: None)
  Receive Date: 20150901
  Receipt Date: 20150901
  Transmission Date: 20151125
  Serious: Yes (Hospitalization)
  Sender: FDA-Public Use
  Company Number: None

PATIENT
  Age: 63 Year
  Sex: Male

DRUGS (2)
  1. ACETAMINOPHEN AND CODEINE [Suspect]
     Active Substance: ACETAMINOPHEN\CODEINE PHOSPHATE
     Indication: PAIN
     Dosage: MG
     Route: 048
     Dates: start: 20010727, end: 20131108
  2. INSULIN [Suspect]
     Active Substance: INSULIN NOS
     Indication: DIABETES MELLITUS
     Dosage: ML
     Route: 058
     Dates: start: 20131001, end: 20131029

REACTIONS (4)
  - Diabetes mellitus inadequate control [None]
  - Asthenia [None]
  - Constipation [None]
  - Hypoglycaemia [None]

NARRATIVE: CASE EVENT DATE: 20131029
